FAERS Safety Report 7982293-7 (Version None)
Quarter: 2011Q4

REPORT INFORMATION
  Report Type: 
  Country: None (occurrence: None)
  Receive Date: 20111215
  Receipt Date: 20111207
  Transmission Date: 20120403
  Serious: Yes (Other)
  Sender: FDA-Public Use
  Company Number: BE-BAXTER-2011BH039161

PATIENT
  Sex: Female

DRUGS (2)
  1. ANTICOAGULANT CITRATE DEXTROSE [Suspect]
     Indication: PRODUCT USED FOR UNKNOWN INDICATION
     Route: 065
     Dates: start: 20111206, end: 20111206
  2. SODIUM CHLORIDE 0.9% IN PLASTIC CONTAINER [Suspect]
     Indication: PRODUCT USED FOR UNKNOWN INDICATION
     Route: 065
     Dates: start: 20111206, end: 20111206

REACTIONS (9)
  - CHEST PAIN [None]
  - HEADACHE [None]
  - VOMITING [None]
  - HYPOTENSION [None]
  - MALAISE [None]
  - FEELING HOT [None]
  - LOSS OF CONSCIOUSNESS [None]
  - PYREXIA [None]
  - DIARRHOEA [None]
